FAERS Safety Report 6690485-2 (Version None)
Quarter: 2010Q2

REPORT INFORMATION
  Report Type: 
  Country: None (occurrence: None)
  Receive Date: 20100419
  Receipt Date: 20100419
  Transmission Date: 20101027
  Serious: Yes (Life-Threatening, Other)
  Sender: FDA-Public Use
  Company Number: None

PATIENT
  Sex: Female
  Weight: 58.9676 kg

DRUGS (3)
  1. NASONEX [Suspect]
     Indication: SINUS CONGESTION
     Dosage: 17GM 2 SPRAY DAILY
     Dates: start: 20100310, end: 20100323
  2. ATENOLOL [Concomitant]
  3. NORVASC [Concomitant]

REACTIONS (13)
  - BLOOD PRESSURE INCREASED [None]
  - DIARRHOEA [None]
  - EYE INJURY [None]
  - EYE PAIN [None]
  - EYE SWELLING [None]
  - EYELID BLEEDING [None]
  - FEELING ABNORMAL [None]
  - HAEMORRHAGE [None]
  - MUSCLE STRAIN [None]
  - PAIN [None]
  - PERIORBITAL HAEMATOMA [None]
  - SINUS PERFORATION [None]
  - STRESS [None]
